FAERS Safety Report 8330099-1 (Version None)
Quarter: 2012Q2

REPORT INFORMATION
  Report Type: 
  Country: None (occurrence: None)
  Receive Date: 20120502
  Receipt Date: 20100113
  Transmission Date: 20120825
  Serious: No
  Sender: FDA-Public Use
  Company Number: US-TEVA-2010000194

PATIENT
  Sex: Female
  Weight: 74.002 kg

DRUGS (6)
  1. CAPADEX [Concomitant]
     Dosage: 60 MILLIGRAM;
     Dates: start: 20090901
  2. NUVIGIL [Suspect]
     Dosage: 250 MILLIGRAM;
     Route: 048
     Dates: start: 20091230, end: 20091231
  3. SINGULAIR [Concomitant]
     Indication: ASTHMA
     Dosage: 10 MILLIGRAM;
     Dates: start: 20080801
  4. NUVIGIL [Suspect]
     Dosage: 150 MILLIGRAM;
     Route: 048
     Dates: start: 20100101, end: 20100104
  5. NUVIGIL [Suspect]
     Indication: SOMNOLENCE
     Dosage: 150 MILLIGRAM;
     Route: 048
     Dates: start: 20091225, end: 20091229
  6. SYMBICORT [Concomitant]
     Indication: ASTHMA
     Dates: start: 20080801

REACTIONS (4)
  - BLOOD PRESSURE INCREASED [None]
  - DRUG INEFFECTIVE FOR UNAPPROVED INDICATION [None]
  - DIZZINESS [None]
  - TACHYCARDIA [None]
